FAERS Safety Report 13916171 (Version 1)
Quarter: 2017Q3

REPORT INFORMATION
  Report Type: Spontaneous
  Country: US (occurrence: None)
  Receive Date: 20170827
  Receipt Date: 20170827
  Transmission Date: 20171127
  Serious: No
  Sender: FDA-Public Use
  Company Number: None

PATIENT
  Sex: Female

DRUGS (1)
  1. HUMIRA [Suspect]
     Active Substance: ADALIMUMAB
     Indication: RHEUMATOID ARTHRITIS
     Route: 058
     Dates: start: 201705, end: 20170815

REACTIONS (6)
  - Fatigue [None]
  - Dyspnoea [None]
  - Cough [None]
  - Pleural effusion [None]
  - Pneumonitis [None]
  - Pneumonia [None]
